FAERS Safety Report 13816046 (Version 1)
Quarter: 2017Q3

REPORT INFORMATION
  Report Type: Spontaneous
  Country: PT (occurrence: PT)
  Receive Date: 20170731
  Receipt Date: 20170731
  Transmission Date: 20171127
  Serious: Yes (Other)
  Sender: FDA-Public Use
  Company Number: PT-BAYER-2017-133964

PATIENT
  Age: 31 Year
  Sex: Male

DRUGS (4)
  1. RIFAMPICINE [Concomitant]
     Active Substance: RIFAMPIN
  2. MOXIFLOXACIN IV [Suspect]
     Active Substance: MOXIFLOXACIN
  3. ETHAMBUTOL [Concomitant]
     Active Substance: ETHAMBUTOL HYDROCHLORIDE
  4. PYRAZINAMIDE. [Concomitant]
     Active Substance: PYRAZINAMIDE

REACTIONS (3)
  - Off label use [None]
  - Polyarthritis [None]
  - Product use in unapproved indication [None]
